FAERS Safety Report 15690030 (Version 1)
Quarter: 2018Q4

REPORT INFORMATION
  Report Type: Spontaneous
  Country: CN (occurrence: CN)
  Receive Date: 20181205
  Receipt Date: 20181205
  Transmission Date: 20190205
  Serious: Yes (Other)
  Sender: FDA-Public Use
  Company Number: CN-PFIZER INC-2018493325

PATIENT
  Age: 85 Year
  Sex: Male
  Weight: 68 kg

DRUGS (2)
  1. VITAMIN B1 [THIAMINE] [Concomitant]
     Indication: THERAPEUTIC PROCEDURE
     Dosage: 2 DF, 3X/DAY
     Route: 048
     Dates: start: 20180920, end: 20180930
  2. NORVASC [Suspect]
     Active Substance: AMLODIPINE BESYLATE
     Indication: HYPERTENSION
     Dosage: 5 MG, 1X/DAY
     Route: 048
     Dates: start: 20180920, end: 20180930

REACTIONS (1)
  - Haemorrhage subcutaneous [Recovering/Resolving]

NARRATIVE: CASE EVENT DATE: 20180930
